FAERS Safety Report 4730955-7 (Version None)
Quarter: 2005Q3

REPORT INFORMATION
  Report Type: 
  Country: None (occurrence: None)
  Receive Date: 20050801
  Receipt Date: 20040510
  Transmission Date: 20060218
  Serious: Yes (Other)
  Sender: FDA-Public Use
  Company Number: US-MERCK-0405USA00645

PATIENT
  Age: 39 Year
  Sex: Male

DRUGS (11)
  1. VIOXX [Suspect]
     Indication: OSTEOARTHRITIS
     Route: 048
     Dates: start: 19990826, end: 20000101
  2. VIOXX [Suspect]
     Route: 048
     Dates: start: 19990701, end: 19990826
  3. VIOXX [Suspect]
     Indication: ANALGESIC EFFECT
     Route: 048
     Dates: start: 19990826, end: 20000101
  4. VIOXX [Suspect]
     Route: 048
     Dates: start: 19990701, end: 19990826
  5. MOBIC [Concomitant]
     Route: 065
  6. NEURONTIN [Concomitant]
     Route: 065
  7. PRILOSEC [Concomitant]
     Indication: DYSPEPSIA
     Route: 065
  8. OXYCONTIN [Concomitant]
     Indication: PAIN
     Route: 065
  9. NORTRIPTYLINE [Concomitant]
     Indication: PAIN
     Route: 065
  10. GLUCOTROL [Concomitant]
     Indication: DIABETES MELLITUS
     Route: 065
  11. PAXIL [Concomitant]
     Route: 065

REACTIONS (12)
  - CEREBROVASCULAR ACCIDENT [None]
  - CONVULSION [None]
  - DERMATITIS [None]
  - DYSPNOEA [None]
  - FOLLICULITIS [None]
  - GASTROOESOPHAGEAL REFLUX DISEASE [None]
  - HYPOAESTHESIA [None]
  - NEPHROLITHIASIS [None]
  - PAIN [None]
  - PAIN IN EXTREMITY [None]
  - RHEUMATOID ARTHRITIS [None]
  - SEBORRHOEA [None]
